FAERS Safety Report 8155387-3 (Version None)
Quarter: 2012Q1

REPORT INFORMATION
  Report Type: 
  Country: None (occurrence: None)
  Receive Date: 20120222
  Receipt Date: 20120210
  Transmission Date: 20120608
  Serious: Yes (Other)
  Sender: FDA-Public Use
  Company Number: JP-AMGEN-JPNSP2012006350

PATIENT

DRUGS (3)
  1. ENBREL [Suspect]
     Indication: PRODUCT USED FOR UNKNOWN INDICATION
     Dosage: UNK
     Route: 058
     Dates: start: 20090901, end: 20091201
  2. METHOTREXATE SODIUM [Suspect]
     Dosage: UNK
     Dates: start: 20090101
  3. ENBREL [Suspect]
     Dosage: UNK
     Route: 058
     Dates: start: 20120101, end: 20120101

REACTIONS (1)
  - BONE MARROW FAILURE [None]
